FAERS Safety Report 10046812 (Version 4)
Quarter: 2014Q2

REPORT INFORMATION
  Report Type: Spontaneous
  Country: BR (occurrence: BR)
  Receive Date: 20140331
  Receipt Date: 20140507
  Transmission Date: 20141212
  Serious: Yes (Other)
  Sender: FDA-Public Use
  Company Number: BR-SANOFI-AVENTIS-2013SA092690

PATIENT
  Age: 40 Year
  Sex: Female

DRUGS (1)
  1. LANTUS [Suspect]
     Indication: TYPE 1 DIABETES MELLITUS
     Route: 065
     Dates: start: 201309

REACTIONS (6)
  - Foetal death [Unknown]
  - Exposure during pregnancy [Unknown]
  - Hypoglycaemia [Unknown]
  - Gallbladder disorder [Unknown]
  - Vomiting [Unknown]
  - Back pain [Unknown]
